FAERS Safety Report 13905694 (Version 1)
Quarter: 2017Q3

REPORT INFORMATION
  Report Type: Report from Study
  Country: US (occurrence: US)
  Receive Date: 20170825
  Receipt Date: 20170825
  Transmission Date: 20171127
  Serious: Yes (Other)
  Sender: FDA-Public Use
  Company Number: US-BAYER-2017-026059

PATIENT
  Age: 65 Year
  Sex: Male

DRUGS (6)
  1. NEXAVAR [Suspect]
     Active Substance: SORAFENIB
     Indication: HEPATOCELLULAR CARCINOMA
     Dosage: DAILY DOSE 400 MG
     Route: 048
     Dates: start: 20170613
  2. NEXAVAR [Suspect]
     Active Substance: SORAFENIB
     Indication: HEPATOCELLULAR CARCINOMA
     Dosage: 400 MG, BID
     Route: 048
     Dates: start: 20170202, end: 2017
  3. NEXAVAR [Suspect]
     Active Substance: SORAFENIB
     Indication: HEPATOCELLULAR CARCINOMA
     Dosage: 400 MG DAILY DOSE
     Route: 048
     Dates: start: 2017, end: 2017
  4. NEXAVAR [Suspect]
     Active Substance: SORAFENIB
     Indication: PROSTATE CANCER
     Dosage: 400 MG, BID  FOR 30 DAYS
     Route: 048
     Dates: start: 2017, end: 2017
  5. NEXAVAR [Suspect]
     Active Substance: SORAFENIB
     Indication: HEPATOCELLULAR CARCINOMA
     Dosage: 200 MG, QD
     Route: 048
     Dates: start: 2017, end: 2017
  6. NEXAVAR [Suspect]
     Active Substance: SORAFENIB
     Indication: HEPATOCELLULAR CARCINOMA
     Dosage: 400 MG DAILY DOSE
     Route: 048
     Dates: start: 20170513, end: 2017

REACTIONS (19)
  - Discomfort [None]
  - Hypoaesthesia [None]
  - Hypertension [None]
  - Gait disturbance [None]
  - Hyperkeratosis [None]
  - Skin disorder [Not Recovered/Not Resolved]
  - Tongue ulceration [Not Recovered/Not Resolved]
  - Chest pain [Recovered/Resolved]
  - Oral pain [Not Recovered/Not Resolved]
  - Mass [None]
  - Hyperkeratosis [Not Recovered/Not Resolved]
  - Hyperkeratosis [None]
  - Constipation [None]
  - Headache [None]
  - Blood pressure increased [None]
  - Pain in extremity [Not Recovered/Not Resolved]
  - Hypoaesthesia [None]
  - Drug dose omission [None]
  - Drug ineffective [None]

NARRATIVE: CASE EVENT DATE: 2017
